FAERS Safety Report 14409324 (Version 3)
Quarter: 2018Q1

REPORT INFORMATION
  Report Type: Spontaneous
  Country: RS (occurrence: RS)
  Receive Date: 20180119
  Receipt Date: 20180213
  Transmission Date: 20180509
  Serious: Yes (Death, Other)
  Sender: FDA-Public Use
  Company Number: RS-ASTRAZENECA-2018SE05694

PATIENT
  Age: 84 Year
  Sex: Male

DRUGS (8)
  1. BRILIQUE [Suspect]
     Active Substance: TICAGRELOR
     Route: 048
     Dates: start: 20180103, end: 20180104
  2. ASPIRIN. [Concomitant]
     Active Substance: ASPIRIN
     Dosage: 300 MG
  3. BRILIQUE [Suspect]
     Active Substance: TICAGRELOR
     Route: 048
  4. ASPIRIN. [Concomitant]
     Active Substance: ASPIRIN
     Dosage: 100 MG
     Dates: start: 20180104
  5. HEPARIN [Concomitant]
     Active Substance: HEPARIN SODIUM
  6. CRESTOR [Concomitant]
     Active Substance: ROSUVASTATIN CALCIUM
  7. RAMIPRIL. [Concomitant]
     Active Substance: RAMIPRIL
  8. INSULIN [Concomitant]
     Active Substance: INSULIN NOS
     Dosage: AS REQUIRED

REACTIONS (4)
  - Cerebral haemorrhage [Fatal]
  - Cerebellar haemorrhage [Fatal]
  - Coma [Unknown]
  - Brain oedema [Unknown]
